FAERS Safety Report 14547483 (Version 1)
Quarter: 2018Q1

REPORT INFORMATION
  Report Type: Spontaneous
  Country: LB (occurrence: LB)
  Receive Date: 20180219
  Receipt Date: 20180219
  Transmission Date: 20180509
  Serious: Yes (Death, Hospitalization, Other)
  Sender: FDA-Public Use
  Company Number: LB-MYLANLABS-2018M1011281

PATIENT
  Age: 64 Year
  Sex: Female

DRUGS (14)
  1. AZACITIDINE. [Suspect]
     Active Substance: AZACITIDINE
     Dosage: 32 MG/M2/DAY FOR 5 DAYS MONTHLY STARTED ON DAY 47 POST TRANSPLANT FOR 2 CYCLES
     Route: 065
  2. CYCLOSPORINE. [Suspect]
     Active Substance: CYCLOSPORINE
     Indication: PROPHYLAXIS AGAINST GRAFT VERSUS HOST DISEASE
     Dosage: STARTED ON DAY 5 POST TRANSPLANT
     Route: 065
  3. IDARUBICIN [Suspect]
     Active Substance: IDARUBICIN
     Indication: ACUTE MYELOID LEUKAEMIA
     Dosage: 12/MG/M2/DAY FOR 3 DAYS
     Route: 065
  4. CYCLOPHOSPHAMIDE. [Suspect]
     Active Substance: CYCLOPHOSPHAMIDE
     Indication: ACUTE MYELOID LEUKAEMIA
     Dosage: 50MG/KG ON DAYS 3 AND 4
     Route: 065
  5. BUSULFAN. [Suspect]
     Active Substance: BUSULFAN
     Indication: BONE MARROW CONDITIONING REGIMEN
     Dosage: 130 MG/M2/DAY FOR 2 DAYS STARTING 3 DAYS BEFORE TRANSPLANT
     Route: 042
  6. RITUXIMAB. [Suspect]
     Active Substance: RITUXIMAB
     Indication: EPSTEIN-BARR VIRUS INFECTION
     Dosage: WEEKLY 375 MG/M2 FOR 3 DOSES.
     Route: 065
  7. CYTARABINE. [Suspect]
     Active Substance: CYTARABINE
     Indication: ACUTE MYELOID LEUKAEMIA
     Dosage: 1.5G/M2/DAY FOR 4 DAYS AS A CONTINUOUS INFUSION
     Route: 050
  8. MYCOPHENOLATE MOFETIL. [Suspect]
     Active Substance: MYCOPHENOLATE MOFETIL
     Indication: PROPHYLAXIS AGAINST GRAFT VERSUS HOST DISEASE
     Dosage: STARTED ON DAY 5 POST TRANSPLANT
     Route: 065
  9. THYMOGLOBULIN [Suspect]
     Active Substance: LAPINE T-LYMPHOCYTE IMMUNE GLOBULIN
     Indication: BONE MARROW CONDITIONING REGIMEN
     Dosage: 2.5 MG/KG FOR 2 DAYS STARTING 2 DAYS BEFORE TRANSPLANT
     Route: 065
  10. UROMITEXAN [Concomitant]
     Active Substance: MESNA
     Indication: ACUTE MYELOID LEUKAEMIA
     Dosage: UNK
     Route: 065
  11. VALGANCICLOVIR. [Concomitant]
     Active Substance: VALGANCICLOVIR
     Indication: CYTOMEGALOVIRUS INFECTION
     Dosage: UNK
     Route: 065
  12. THIOTEPA. [Suspect]
     Active Substance: THIOTEPA
     Indication: BONE MARROW CONDITIONING REGIMEN
     Dosage: 5MG/KG, SEVEN DAYS BEFORE TRANSPLANTATION
     Route: 065
  13. AZACITIDINE. [Suspect]
     Active Substance: AZACITIDINE
     Indication: STEM CELL TRANSPLANT
     Dosage: FIVE MONTHLY COURSES OF MAINTENANCE 75MG/M2/DAY FOR 7 DAYS EVERY 28 DAYS
     Route: 065
  14. FLUDARABINE [Suspect]
     Active Substance: FLUDARABINE PHOSPHATE
     Indication: BONE MARROW CONDITIONING REGIMEN
     Dosage: 30 MG/M2/DAY FOR 5 DAYS STARTING 6 DAYS BEFORE TRANSPLANT
     Route: 065

REACTIONS (3)
  - JC virus infection [Fatal]
  - Progressive multifocal leukoencephalopathy [Fatal]
  - Hepatotoxicity [Unknown]
